FAERS Safety Report 11393429 (Version 1)
Quarter: 2015Q3

REPORT INFORMATION
  Report Type: Report from Study
  Country: US (occurrence: US)
  Receive Date: 20150818
  Receipt Date: 20150818
  Transmission Date: 20151125
  Serious: No
  Sender: FDA-Public Use
  Company Number: PHEH2015US011666

PATIENT
  Age: 45 Year

DRUGS (1)
  1. TRILEPTAL [Suspect]
     Active Substance: OXCARBAZEPINE
     Indication: PRODUCT USED FOR UNKNOWN INDICATION
     Dosage: 3 DF (600 MG) , BID
     Route: 048
     Dates: start: 20150615

REACTIONS (1)
  - Prescribed overdose [Unknown]

NARRATIVE: CASE EVENT DATE: 20150615
